FAERS Safety Report 5918660-2 (Version None)
Quarter: 2008Q4

REPORT INFORMATION
  Report Type: 
  Country: None (occurrence: None)
  Receive Date: 20081015
  Receipt Date: 20080430
  Transmission Date: 20090506
  Serious: No
  Sender: FDA-Public Use
  Company Number: US-ASTRAZENECA-2008UW08920

PATIENT
  Age: 78 Year

DRUGS (2)
  1. SYMBICORT [Suspect]
     Indication: ASTHMA
     Dosage: 80/4.5 UG
     Route: 055
  2. PROVENTIL [Concomitant]

REACTIONS (2)
  - ARTHRALGIA [None]
  - JOINT SPRAIN [None]
